FAERS Safety Report 23699251 (Version 2)
Quarter: 2024Q2

REPORT INFORMATION
  Report Type: Spontaneous
  Country: TR (occurrence: TR)
  Receive Date: 20240402
  Receipt Date: 20240606
  Transmission Date: 20240716
  Serious: Yes (Other)
  Sender: FDA-Public Use
  Company Number: TR-002147023-NVSC2024TR068420

PATIENT
  Age: 37 Year
  Sex: Female

DRUGS (2)
  1. SECUKINUMAB [Suspect]
     Active Substance: SECUKINUMAB
     Indication: Psoriatic arthropathy
     Dosage: UNK, Q2MO (TWICE A MONTH)
     Route: 065
  2. SECUKINUMAB [Suspect]
     Active Substance: SECUKINUMAB
     Dosage: UNK, QMO (ONCE A MONTH)
     Route: 065
     Dates: start: 202311

REACTIONS (6)
  - Pharyngitis [Unknown]
  - Cough [Not Recovered/Not Resolved]
  - Lymphoma [Unknown]
  - Pulmonary hilar enlargement [Unknown]
  - Oropharyngeal pain [Unknown]
  - Lymphadenopathy [Unknown]
